FAERS Safety Report 4686857-8 (Version None)
Quarter: 2005Q2

REPORT INFORMATION
  Report Type: 
  Country: None (occurrence: None)
  Receive Date: 20050608
  Receipt Date: 20050530
  Transmission Date: 20051028
  Serious: No
  Sender: FDA-Public Use
  Company Number: 2005JP000675

PATIENT
  Age: 11 Month
  Sex: Male

DRUGS (1)
  1. PROGRAF [Suspect]
     Indication: LIVER TRANSPLANT
     Dosage: 5.00 MG/D , ORAL
     Route: 048
     Dates: start: 20040330

REACTIONS (1)
  - SPEECH DISORDER DEVELOPMENTAL [None]
